FAERS Safety Report 7869381-0 (Version None)
Quarter: 2011Q4

REPORT INFORMATION
  Report Type: 
  Country: None (occurrence: None)
  Receive Date: 20111028
  Receipt Date: 20111028
  Transmission Date: 20120403
  Serious: No
  Sender: FDA-Public Use
  Company Number: None

PATIENT
  Age: 19 Year
  Sex: Male
  Weight: 61.4 kg

DRUGS (2)
  1. TRAZODONE HCL [Suspect]
     Indication: INSOMNIA
     Dosage: ONE NIGHTLY PRN ORALLY
     Route: 048
  2. VYVANSE [Suspect]
     Indication: ATTENTION DEFICIT/HYPERACTIVITY DISORDER
     Dosage: ONE DAILY ORALLY
     Route: 048

REACTIONS (2)
  - PAINFUL ERECTION [None]
  - PRIAPISM [None]
